FAERS Safety Report 21164912 (Version 1)
Quarter: 2022Q3

REPORT INFORMATION
  Report Type: Spontaneous
  Country: US (occurrence: US)
  Receive Date: 20220803
  Receipt Date: 20220803
  Transmission Date: 20221027
  Serious: No
  Sender: FDA-Public Use
  Company Number: US-CIPLA LTD.-2022US03269

PATIENT
  Sex: Female

DRUGS (7)
  1. MELOXICAM [Suspect]
     Active Substance: MELOXICAM
     Indication: Osteoarthritis
     Dosage: 15 MILLIGRAM, QD
     Route: 048
     Dates: start: 20220307
  2. MELOXICAM [Suspect]
     Active Substance: MELOXICAM
     Indication: Arthralgia
  3. LOSARTAN AND HYDROCHLOROTHIAZIDE [Concomitant]
     Active Substance: HYDROCHLOROTHIAZIDE\LOSARTAN POTASSIUM
     Indication: Blood pressure abnormal
     Dosage: 100/25 (UNSPECIFIED UNITS) UNK, 10-15 YEARS AGO
     Route: 065
  4. ROSUVASTATIN [Concomitant]
     Active Substance: ROSUVASTATIN
     Indication: Lipids abnormal
     Dosage: 200 MG UNK, LAST 8 YEARS
     Route: 065
  5. VITAMINS NOS [Concomitant]
     Active Substance: VITAMINS
     Indication: Supplementation therapy
     Dosage: 10 MG, UNK, LAST 7 YEARS
     Route: 065
  6. MINERALS\VITAMINS [Concomitant]
     Active Substance: MINERALS\VITAMINS
     Indication: Supplementation therapy
     Dosage: UNK
     Route: 065
  7. COENZYME Q10 [Concomitant]
     Active Substance: DIETARY SUPPLEMENT\UBIDECARENONE
     Indication: Product used for unknown indication
     Dosage: 200 MG, UNK
     Route: 065

REACTIONS (4)
  - Feeling abnormal [Unknown]
  - Discomfort [Unknown]
  - Drug ineffective [Recovered/Resolved]
  - Product quality issue [Unknown]

NARRATIVE: CASE EVENT DATE: 20220101
